FAERS Safety Report 21532568 (Version 1)
Quarter: 2022Q4

REPORT INFORMATION
  Report Type: Other
  Country: None (occurrence: TW)
  Receive Date: 20221101
  Receipt Date: 20221101
  Transmission Date: 20230112
  Serious: Yes (Hospitalization, Other)
  Sender: FDA-Public Use
  Company Number: TW-BIOLOGICAL E. LTD-2134338

PATIENT
  Age: 40 Year
  Sex: Female
  Weight: 70 kg

DRUGS (7)
  1. NEOSTIGMINE METHYLSULFATE [Suspect]
     Active Substance: NEOSTIGMINE METHYLSULFATE
     Indication: Neuromuscular blockade
     Route: 065
  2. GLYCOPYRROLATE [Suspect]
     Active Substance: GLYCOPYRROLATE
     Route: 065
  3. ATROPINE [Concomitant]
     Active Substance: ATROPINE
     Route: 042
  4. LIDOCAINE [Concomitant]
     Active Substance: LIDOCAINE
     Route: 065
  5. FENTANYL [Concomitant]
     Active Substance: FENTANYL
     Route: 065
  6. PROPOFOL [Concomitant]
     Active Substance: PROPOFOL
     Route: 065
  7. ROCURONIUM [Concomitant]
     Active Substance: ROCURONIUM BROMIDE
     Route: 065

REACTIONS (1)
  - Drug ineffective [Unknown]
